FAERS Safety Report 4748608-8 (Version None)
Quarter: 2005Q3

REPORT INFORMATION
  Report Type: 
  Country: None (occurrence: None)
  Receive Date: 20050818
  Receipt Date: 20050815
  Transmission Date: 20060218
  Serious: Yes (Hospitalization)
  Sender: FDA-Public Use
  Company Number: 005417

PATIENT
  Age: 73 Year
  Sex: Male
  Weight: 68.9 kg

DRUGS (2)
  1. DEMECLOCYCLINE HCL (DEMECLOCYCLINE HYDROCHLORIDE) TABLET, 300MG [Suspect]
     Indication: BLOOD SODIUM DECREASED
     Dosage: 300.00 MG, QD; BID, ORAL
     Route: 048
     Dates: start: 20050607, end: 20050728
  2. DEMECLOCYCLINE HCL (DEMECLOCYCLINE HYDROCHLORIDE) TABLET, 300MG [Suspect]
     Indication: BLOOD SODIUM DECREASED
     Dosage: 300.00 MG, QD; BID, ORAL
     Route: 048
     Dates: start: 20050805

REACTIONS (4)
  - CONDITION AGGRAVATED [None]
  - CONFUSIONAL STATE [None]
  - HYPONATRAEMIA [None]
  - OFF LABEL USE [None]
